FAERS Safety Report 15545719 (Version 1)
Quarter: 2018Q4

REPORT INFORMATION
  Report Type: Spontaneous
  Country: US (occurrence: US)
  Receive Date: 20181017
  Receipt Date: 20181017
  Transmission Date: 20190205
  Serious: No
  Sender: FDA-Public Use
  Company Number: None

PATIENT
  Age: 19 Year

DRUGS (1)
  1. RISPERDONE 0.5MG [Suspect]
     Active Substance: RISPERIDONE
     Indication: ANXIETY
     Route: 048
     Dates: start: 20140120, end: 20140520

REACTIONS (1)
  - Galactorrhoea [None]

NARRATIVE: CASE EVENT DATE: 20140917
